FAERS Safety Report 23866779 (Version 1)
Quarter: 2024Q2

REPORT INFORMATION
  Report Type: Spontaneous
  Country: US (occurrence: US)
  Receive Date: 20240517
  Receipt Date: 20240517
  Transmission Date: 20240716
  Serious: Yes (Other)
  Sender: FDA-Public Use
  Company Number: US-TEVA-VS-3191411

PATIENT
  Age: 55 Year
  Sex: Female

DRUGS (3)
  1. CLONAZEPAM [Suspect]
     Active Substance: CLONAZEPAM
     Indication: Anxiety
     Dosage: PILL
     Route: 065
     Dates: start: 20240425
  2. CLONAZEPAM [Suspect]
     Active Substance: CLONAZEPAM
     Indication: Anxiety
     Dosage: PILL
     Route: 065
     Dates: end: 2024
  3. ESTROGENS [Concomitant]
     Active Substance: ESTROGENS

REACTIONS (10)
  - Near death experience [Unknown]
  - Diarrhoea [Unknown]
  - Product prescribing issue [Unknown]
  - Expired product administered [Unknown]
  - Anxiety [Unknown]
  - Cardiac disorder [Unknown]
  - Feeling abnormal [Unknown]
  - Acne [Not Recovered/Not Resolved]
  - Urticaria [Not Recovered/Not Resolved]
  - Product use in unapproved indication [Unknown]

NARRATIVE: CASE EVENT DATE: 20240425
